FAERS Safety Report 7355151-9 (Version None)
Quarter: 2011Q1

REPORT INFORMATION
  Report Type: 
  Country: None (occurrence: None)
  Receive Date: 20110307
  Receipt Date: 20100503
  Transmission Date: 20110831
  Serious: No
  Sender: FDA-Public Use
  Company Number: AEUSA201000148

PATIENT
  Age: 47 Year
  Sex: Male
  Weight: 72.6 kg

DRUGS (2)
  1. PROLASTIN-C [Suspect]
     Indication: ALPHA-1 ANTI-TRYPSIN DEFICIENCY
     Dosage: 120 MG/KG, QW, IV
     Route: 042
     Dates: start: 20100201, end: 20100429
  2. PROLASTIN-C [Suspect]

REACTIONS (1)
  - DYSPNOEA [None]
